FAERS Safety Report 8065628-9 (Version None)
Quarter: 2012Q1

REPORT INFORMATION
  Report Type: 
  Country: None (occurrence: None)
  Receive Date: 20120117
  Receipt Date: 20120104
  Transmission Date: 20120608
  Serious: Yes (Other)
  Sender: FDA-Public Use
  Company Number: 1000026950

PATIENT
  Age: 26 Year
  Sex: Female

DRUGS (1)
  1. ESCITALOPRAM OXALATE [Suspect]
     Indication: DEPRESSION
     Dosage: 20 MG (20 MG, 1 IN 1 D), ORAL
     Route: 048
     Dates: start: 20050101, end: 20100101

REACTIONS (4)
  - FOETAL DEATH [None]
  - ABORTION MISSED [None]
  - PREGNANCY [None]
  - MATERNAL EXPOSURE DURING PREGNANCY [None]
